FAERS Safety Report 8479174-1 (Version None)
Quarter: 2012Q2

REPORT INFORMATION
  Report Type: 
  Country: None (occurrence: None)
  Receive Date: 20120402
  Receipt Date: 20111114
  Transmission Date: 20120825
  Serious: Yes (Hospitalization)
  Sender: FDA-Public Use
  Company Number: A-US2011-56552

PATIENT
  Age: 61 Year
  Sex: Female

DRUGS (4)
  1. COUMADIN [Concomitant]
  2. REVATIO [Concomitant]
  3. TRACLEER [Suspect]
     Indication: PULMONARY ARTERIAL HYPERTENSION
     Dosage: UNK, OROPHARINGEAL
     Route: 049
     Dates: start: 20100323
  4. VENTAVIS [Suspect]
     Indication: PULMONARY ARTERIAL HYPERTENSION
     Dosage: UNK, RESPIRATORY
     Route: 055
     Dates: start: 20110601

REACTIONS (1)
  - SYNCOPE [None]
